FAERS Safety Report 21727697 (Version 1)
Quarter: 2022Q4

REPORT INFORMATION
  Report Type: Spontaneous
  Country: US (occurrence: None)
  Receive Date: 20221213
  Receipt Date: 20221213
  Transmission Date: 20230112
  Serious: Yes (Life-Threatening, Hospitalization, Disabling, Other)
  Sender: FDA-Public Use
  Company Number: None

PATIENT
  Age: 38 Year
  Sex: Female
  Weight: 56.25 kg

DRUGS (3)
  1. LEVOFLOXACIN [Suspect]
     Active Substance: LEVOFLOXACIN
     Indication: Pneumonia
     Dosage: OTHER QUANTITY : 7 TABLET(S);?FREQUENCY : DAILY;?
     Route: 048
     Dates: start: 2019, end: 20190612
  2. DOXYCYCLINE HYCLATE [Suspect]
     Active Substance: DOXYCYCLINE HYCLATE
     Indication: Influenza like illness
     Dosage: OTHER QUANTITY : 1 CAPSULE(S);?FREQUENCY : EVERY 12 HOURS;?
     Route: 048
     Dates: start: 20190529, end: 20190602
  3. VITAMINS [Concomitant]
     Active Substance: VITAMINS

REACTIONS (5)
  - Loss of consciousness [None]
  - Fall [None]
  - Loss of consciousness [None]
  - Vomiting [None]
  - Toxicity to various agents [None]

NARRATIVE: CASE EVENT DATE: 20190529
